FAERS Safety Report 9303906 (Version 2)
Quarter: 2013Q2

REPORT INFORMATION
  Report Type: Report from Study
  Country: CA (occurrence: CA)
  Receive Date: 20130522
  Receipt Date: 20130619
  Transmission Date: 20140414
  Serious: Yes (Hospitalization, Other)
  Sender: FDA-Public Use
  Company Number: CA-ABBOTT-13P-028-1091900-00

PATIENT
  Sex: Male
  Weight: 65.83 kg

DRUGS (1)
  1. LUPRON DEPOT [Suspect]
     Indication: PROSTATE CANCER
     Route: 050
     Dates: start: 20071130

REACTIONS (7)
  - Tooth abscess [Unknown]
  - Facial pain [Unknown]
  - Lung infection [Unknown]
  - Arthralgia [Unknown]
  - Dysuria [Unknown]
  - Urinary retention [Unknown]
  - Swelling face [Unknown]
